FAERS Safety Report 13855481 (Version 3)
Quarter: 2019Q3

REPORT INFORMATION
  Report Type: Spontaneous
  Country: FR (occurrence: FR)
  Receive Date: 20170810
  Receipt Date: 20190802
  Transmission Date: 20191004
  Serious: Yes (Death, Congenital Anomaly)
  Sender: FDA-Public Use
  Company Number: FR-ABBVIE-17P-056-2067920-00

PATIENT

DRUGS (1)
  1. DEPAKINE CHRONO [Suspect]
     Active Substance: VALPROATE SODIUM
     Indication: MATERNAL EXPOSURE TIMING UNSPECIFIED
     Route: 064

REACTIONS (8)
  - Foetal exposure during pregnancy [Unknown]
  - Foetal death [Fatal]
  - Talipes [Unknown]
  - Congenital foot malformation [Unknown]
  - Skull malformation [Unknown]
  - Arnold-Chiari malformation [Unknown]
  - Alpha 1 foetoprotein [Unknown]
  - Spina bifida [Unknown]
